FAERS Safety Report 5299893-8 (Version None)
Quarter: 2007Q2

REPORT INFORMATION
  Report Type: 
  Country: None (occurrence: None)
  Receive Date: 20070410
  Receipt Date: 20070326
  Transmission Date: 20071010
  Serious: Yes (Hospitalization)
  Sender: FDA-Public Use
  Company Number: 238920

PATIENT
  Age: 42 Year
  Sex: Male

DRUGS (5)
  1. RANIBIZUMAB OR SHAM INJECTION(CODE NOT BROKEN) POWDER AND SOLVENT FOR [Suspect]
     Indication: DIABETIC RETINAL OEDEMA
     Dosage: UNK, UNK, INTRAVITREAL
     Dates: start: 20061030
  2. INSULIN (INSULIN) [Concomitant]
  3. IRBESARTAN [Concomitant]
  4. SIMVASTATIN [Concomitant]
  5. VIAGRA [Concomitant]

REACTIONS (3)
  - CONCOMITANT DISEASE PROGRESSION [None]
  - GANGRENE [None]
  - TOE AMPUTATION [None]
